FAERS Safety Report 4996182-3 (Version None)
Quarter: 2006Q2

REPORT INFORMATION
  Report Type: 
  Country: None (occurrence: None)
  Receive Date: 20060504
  Receipt Date: 20060426
  Transmission Date: 20061013
  Serious: Yes (Hospitalization, Other)
  Sender: FDA-Public Use
  Company Number: 2006053847

PATIENT
  Age: 70 Year
  Sex: Female

DRUGS (8)
  1. LYRICA [Suspect]
     Indication: HEADACHE
     Dosage: 150 MG (75 MG, BID), ORAL
     Route: 048
     Dates: start: 20051201, end: 20060324
  2. CAPOTEN [Suspect]
     Indication: ILL-DEFINED DISORDER
  3. EVISTA [Concomitant]
  4. INDAPAMIDE [Concomitant]
  5. MINOXIDIL [Concomitant]
  6. LANSOPRAZOL (LANSOPRAZOLE) [Concomitant]
  7. FENOFIBRATE [Concomitant]
  8. VITAMINS (VITAMINS) [Concomitant]

REACTIONS (13)
  - ANOREXIA [None]
  - ASTHENIA [None]
  - BLINDNESS UNILATERAL [None]
  - CHEST DISCOMFORT [None]
  - EYE DISORDER [None]
  - FEELING COLD [None]
  - FEELING HOT [None]
  - HELICOBACTER GASTRITIS [None]
  - HYPERTENSION [None]
  - MALAISE [None]
  - THERAPY NON-RESPONDER [None]
  - TREATMENT NONCOMPLIANCE [None]
  - TREMOR [None]
